FAERS Safety Report 25337079 (Version 2)
Quarter: 2025Q2

REPORT INFORMATION
  Report Type: Spontaneous
  Country: US (occurrence: US)
  Receive Date: 20250520
  Receipt Date: 20250609
  Transmission Date: 20250717
  Serious: No
  Sender: PFIZER
  Company Number: US-PFIZER INC-PV202500060425

PATIENT
  Age: 73 Year
  Sex: Female

DRUGS (1)
  1. PAXLOVID [Suspect]
     Active Substance: NIRMATRELVIR\RITONAVIR
     Indication: COVID-19 treatment

REACTIONS (5)
  - Dysgeusia [Recovered/Resolved]
  - Sinus congestion [Unknown]
  - Therapeutic product effect incomplete [Unknown]
  - Off label use [Unknown]
  - Product use issue [Unknown]
